FAERS Safety Report 5545897-7 (Version None)
Quarter: 2007Q4

REPORT INFORMATION
  Report Type: 
  Country: None (occurrence: None)
  Receive Date: 20071211
  Receipt Date: 20071207
  Transmission Date: 20080405
  Serious: Yes (Other)
  Sender: FDA-Public Use
  Company Number: DE-GENENTECH-247188

PATIENT
  Sex: Male

DRUGS (2)
  1. MABTHERA [Suspect]
     Indication: B-CELL LYMPHOMA
  2. METHOTREXATE [Suspect]
     Indication: B-CELL LYMPHOMA

REACTIONS (3)
  - ALTERED STATE OF CONSCIOUSNESS [None]
  - CEREBELLAR SYNDROME [None]
  - PARANOIA [None]
